FAERS Safety Report 15508048 (Version 3)
Quarter: 2019Q1

REPORT INFORMATION
  Report Type: Spontaneous
  Country: US (occurrence: US)
  Receive Date: 20181016
  Receipt Date: 20190122
  Transmission Date: 20190417
  Serious: No
  Sender: FDA-Public Use
  Company Number: US-PFIZER INC-2018417371

PATIENT
  Age: 66 Year
  Sex: Female
  Weight: 100 kg

DRUGS (1)
  1. IBRANCE [Suspect]
     Active Substance: PALBOCICLIB
     Indication: BREAST CANCER FEMALE
     Dosage: 125 MG, CYCLIC (DAILY X 21 DAYS, 7 DAYS OFF)/(D1-21 Q28 DAYS)
     Route: 048
     Dates: start: 20180918

REACTIONS (3)
  - Skin disorder [Unknown]
  - Liver function test abnormal [Unknown]
  - Nausea [Unknown]

NARRATIVE: CASE EVENT DATE: 2018
